FAERS Safety Report 9242659 (Version 1)
Quarter: 2013Q2

REPORT INFORMATION
  Report Type: Spontaneous
  Country: FR (occurrence: FR)
  Receive Date: 20130419
  Receipt Date: 20130419
  Transmission Date: 20140414
  Serious: Yes (Hospitalization)
  Sender: FDA-Public Use
  Company Number: FR-GLAXOSMITHKLINE-B0883614A

PATIENT
  Age: 60 Year
  Sex: Female

DRUGS (1)
  1. LAMOTRIGINE [Suspect]
     Indication: EPILEPSY
     Route: 065

REACTIONS (10)
  - Meningitis aseptic [Unknown]
  - Drug hypersensitivity [Unknown]
  - Delirium febrile [Unknown]
  - Lymphopenia [Unknown]
  - Anaemia [Unknown]
  - Cholestasis [Unknown]
  - Hepatocellular injury [Unknown]
  - Renal failure [Unknown]
  - Encephalitis [Unknown]
  - Multi-organ failure [Unknown]
